FAERS Safety Report 6546729-0 (Version None)
Quarter: 2010Q1

REPORT INFORMATION
  Report Type: 
  Country: None (occurrence: None)
  Receive Date: 20100122
  Receipt Date: 20100113
  Transmission Date: 20100710
  Serious: Yes (Life-Threatening, Hospitalization, Other)
  Sender: FDA-Public Use
  Company Number: DE-ELI_LILLY_AND_COMPANY-DE200909001793

PATIENT
  Sex: Male

DRUGS (1)
  1. STRATTERA [Suspect]
     Indication: ATTENTION DEFICIT/HYPERACTIVITY DISORDER
     Dosage: 40 MG, UNKNOWN
     Route: 048
     Dates: start: 20060101

REACTIONS (10)
  - CAROTID ARTERY DISEASE [None]
  - CONFUSIONAL STATE [None]
  - DEPRESSED LEVEL OF CONSCIOUSNESS [None]
  - GASTROENTERITIS ESCHERICHIA COLI [None]
  - HAEMOLYTIC URAEMIC SYNDROME [None]
  - HYPOCALCAEMIA [None]
  - METABOLIC DISORDER [None]
  - PARAESTHESIA [None]
  - RENAL FAILURE ACUTE [None]
  - SPEECH DISORDER [None]
